FAERS Safety Report 9143144 (Version 1)
Quarter: 2013Q1

REPORT INFORMATION
  Report Type: Spontaneous
  Country: US (occurrence: US)
  Receive Date: 20130306
  Receipt Date: 20130306
  Transmission Date: 20140127
  Serious: Yes (Hospitalization, Other)
  Sender: FDA-Public Use
  Company Number: US-PFIZER INC-2013074087

PATIENT
  Age: 41 Year
  Sex: Female
  Weight: 68.93 kg

DRUGS (3)
  1. VFEND [Suspect]
     Indication: HISTOPLASMOSIS
     Dosage: 200 MG, 2X/DAY
     Route: 048
     Dates: start: 201301, end: 20130227
  2. HIZENTRA [Concomitant]
     Indication: HYPOGAMMAGLOBULINAEMIA
     Dosage: UNK
  3. VYTORIN [Concomitant]
     Dosage: UNK

REACTIONS (5)
  - Arthralgia [Not Recovered/Not Resolved]
  - Nausea [Not Recovered/Not Resolved]
  - Myalgia [Not Recovered/Not Resolved]
  - Pain [Unknown]
  - Hypokinesia [Unknown]
